FAERS Safety Report 9754256 (Version 1)
Quarter: 2013Q4

REPORT INFORMATION
  Report Type: Spontaneous
  Country: US (occurrence: US)
  Receive Date: 20131213
  Receipt Date: 20131213
  Transmission Date: 20140711
  Serious: No
  Sender: FDA-Public Use
  Company Number: US-TEVA-409202USA

PATIENT
  Age: 35 Year
  Sex: Female
  Weight: 99.88 kg

DRUGS (3)
  1. PARAGARD 380A [Suspect]
     Indication: CONTRACEPTION
     Route: 015
     Dates: start: 20130425, end: 20130528
  2. SYNTHROID [Concomitant]
  3. PLAQUENIL [Concomitant]

REACTIONS (1)
  - Device expulsion [Recovered/Resolved]
